FAERS Safety Report 7115864-0 (Version None)
Quarter: 2010Q4

REPORT INFORMATION
  Report Type: 
  Country: None (occurrence: None)
  Receive Date: 20101122
  Receipt Date: 20101108
  Transmission Date: 20110411
  Serious: Yes (Other)
  Sender: FDA-Public Use
  Company Number: US-ELI_LILLY_AND_COMPANY-US201011002267

PATIENT
  Age: 61 Year

DRUGS (16)
  1. FORTEO [Suspect]
     Indication: OSTEOPENIA
     Dosage: 20 UG, DAILY (1/D)
  2. FORTEO [Suspect]
     Dosage: 20 UG, DAILY (1/D)
  3. VITAMIN D [Concomitant]
  4. MULTI-VITAMIN [Concomitant]
  5. COD-LIVER OIL [Concomitant]
  6. CENTRUM [Concomitant]
  7. POTASSIUM CITRATE [Concomitant]
  8. MACROBID [Concomitant]
  9. ZYRTEC [Concomitant]
  10. ZESTRIL [Concomitant]
  11. ASPIRIN [Concomitant]
     Dosage: 81 MG, UNK
  12. NIASPAN [Concomitant]
  13. ZOCOR [Concomitant]
  14. VALTREX [Concomitant]
  15. NORCO [Concomitant]
  16. IMITREX [Concomitant]
     Dosage: UNK, AS NEEDED

REACTIONS (3)
  - MUSCLE SPASMS [None]
  - NERVE COMPRESSION [None]
  - SPINAL DISORDER [None]
